FAERS Safety Report 5782161-5 (Version None)
Quarter: 2008Q2

REPORT INFORMATION
  Report Type: 
  Country: None (occurrence: None)
  Receive Date: 20080618
  Receipt Date: 20080602
  Transmission Date: 20081010
  Serious: Yes (Hospitalization)
  Sender: FDA-Public Use
  Company Number: DSA_31949_2008

PATIENT
  Sex: Male

DRUGS (3)
  1. TAVOR                       TAVOR - LORAZEPAM) [Suspect]
     Dosage: (20 MG 1X ORAL)
     Route: 048
     Dates: start: 20080531, end: 20080531
  2. ALCOHOL (ALCOHOL - ETHANOL) [Suspect]
     Dosage: (A BOTTLE OF BEER AND A BOTTLE OF SPARKLING WINE ORAL)
     Route: 048
     Dates: start: 20080531, end: 20080531
  3. STILNOX /00914901/ (STILNOX - ZOLPIDEM) 20 MG (NOT SPECIFIED) [Suspect]
     Dosage: (160 MG 1X ORAL)
     Route: 048
     Dates: start: 20080531, end: 20080531

REACTIONS (4)
  - DEPRESSED LEVEL OF CONSCIOUSNESS [None]
  - GAIT DISTURBANCE [None]
  - MULTIPLE DRUG OVERDOSE INTENTIONAL [None]
  - SUICIDE ATTEMPT [None]
